FAERS Safety Report 4626543-3 (Version None)
Quarter: 2005Q1

REPORT INFORMATION
  Report Type: 
  Country: None (occurrence: None)
  Receive Date: 20050330
  Receipt Date: 20050311
  Transmission Date: 20050727
  Serious: Yes (Other)
  Sender: FDA-Public Use
  Company Number: USA050393087

PATIENT
  Age: 9 Year
  Sex: Male
  Weight: 32 kg

DRUGS (1)
  1. STRATTERA [Suspect]
     Dosage: 60 MG/1 DAY
     Dates: start: 20040801

REACTIONS (7)
  - HEPATIC FAILURE [None]
  - MYALGIA [None]
  - MYOSITIS [None]
  - PAIN IN EXTREMITY [None]
  - PYREXIA [None]
  - TENDERNESS [None]
  - WHITE BLOOD CELL COUNT DECREASED [None]
